FAERS Safety Report 9841387 (Version 2)
Quarter: 2014Q1

REPORT INFORMATION
  Report Type: Spontaneous
  Country: US (occurrence: US)
  Receive Date: 20140124
  Receipt Date: 20140319
  Transmission Date: 20141002
  Serious: Yes (Hospitalization, Other)
  Sender: FDA-Public Use
  Company Number: US-SA-2014SA007287

PATIENT
  Age: 39 Year
  Sex: Female
  Weight: 116 kg

DRUGS (11)
  1. RENVELA [Suspect]
     Indication: RENAL FAILURE CHRONIC
     Dosage: RENVELA 800 MG WITH MEALS
     Route: 048
  2. HYDROCODONE [Concomitant]
  3. XANAX [Concomitant]
  4. LASIX [Concomitant]
  5. LOSARTAN [Concomitant]
  6. RANITIDINE [Concomitant]
  7. COREG [Concomitant]
  8. TRAZODONE [Concomitant]
  9. LIPITOR [Concomitant]
  10. ONDASETRON [Concomitant]
  11. INSULIN [Concomitant]

REACTIONS (3)
  - Embolism [Recovered/Resolved]
  - Cerebrovascular accident [Recovered/Resolved]
  - Dysphagia [Recovered/Resolved]
